FAERS Safety Report 11810080 (Version 1)
Quarter: 2015Q4

REPORT INFORMATION
  Report Type: Spontaneous
  Country: US (occurrence: None)
  Receive Date: 20151207
  Receipt Date: 20151207
  Transmission Date: 20160305
  Serious: Yes (Disabling, Other)
  Sender: FDA-Public Use
  Company Number: None

PATIENT
  Age: 57 Year
  Sex: Female
  Weight: 91.17 kg

DRUGS (14)
  1. MEDTRONICS [Concomitant]
  2. FISH OIL [Concomitant]
     Active Substance: FISH OIL
  3. DULOXETINE. [Suspect]
     Active Substance: DULOXETINE
     Indication: DIABETIC NEUROPATHY
     Dosage: TAKEN BY MOUTH
     Dates: start: 20151118, end: 20151203
  4. LEVOTHYROXIN [Concomitant]
     Active Substance: LEVOTHYROXINE
  5. CRESTOR [Concomitant]
     Active Substance: ROSUVASTATIN CALCIUM
  6. VITAMIN D3 [Concomitant]
     Active Substance: CHOLECALCIFEROL
  7. DULOXETINE. [Suspect]
     Active Substance: DULOXETINE
     Indication: DYSTHYMIC DISORDER
     Dosage: TAKEN BY MOUTH
     Dates: start: 20151118, end: 20151203
  8. MULTI VITAMINS/MINERALS [Concomitant]
  9. DULOXETINE. [Concomitant]
     Active Substance: DULOXETINE
  10. INSULIN PUMP [Concomitant]
     Active Substance: INSULIN NOS
  11. ATIVAN [Concomitant]
     Active Substance: LORAZEPAM
  12. DULOXETINE. [Suspect]
     Active Substance: DULOXETINE
     Indication: ANXIETY
     Dosage: TAKEN BY MOUTH
     Dates: start: 20151118, end: 20151203
  13. NOVOLOG [Concomitant]
     Active Substance: INSULIN ASPART
  14. VYVANSE [Concomitant]
     Active Substance: LISDEXAMFETAMINE DIMESYLATE

REACTIONS (10)
  - No therapeutic response [None]
  - Vertigo [None]
  - Pain in extremity [None]
  - Depression [None]
  - Insomnia [None]
  - Blood glucose increased [None]
  - Product substitution issue [None]
  - Decreased interest [None]
  - Arthralgia [None]
  - Paraesthesia [None]

NARRATIVE: CASE EVENT DATE: 20151118
